FAERS Safety Report 8146259-9 (Version None)
Quarter: 2012Q1

REPORT INFORMATION
  Report Type: 
  Country: None (occurrence: None)
  Receive Date: 20120217
  Receipt Date: 20110817
  Transmission Date: 20120608
  Serious: No
  Sender: FDA-Public Use
  Company Number: US-ABBOTT-11P-163-0848143-00

PATIENT
  Sex: Male
  Weight: 95.34 kg

DRUGS (5)
  1. EFFEXOR [Concomitant]
     Indication: DEPRESSION
  2. BYSTOLIC [Concomitant]
     Indication: HYPERTENSION
  3. BENICAR [Concomitant]
     Indication: HYPERTENSION
     Dates: end: 20110814
  4. SIMCOR [Suspect]
     Indication: BLOOD TRIGLYCERIDES INCREASED
     Dosage: 500/20MG / ONCE PER DAY
     Dates: start: 20110201
  5. BENICAR HCT [Suspect]
     Indication: HYPERTENSION
     Dates: start: 20110815

REACTIONS (2)
  - MUSCLE SPASMS [None]
  - DIZZINESS [None]
